FAERS Safety Report 24865359 (Version 1)
Quarter: 2025Q1

REPORT INFORMATION
  Report Type: Spontaneous
  Country: US (occurrence: US)
  Receive Date: 20250121
  Receipt Date: 20250121
  Transmission Date: 20250408
  Serious: Yes (Other)
  Sender: AUROBINDO
  Company Number: US-AUROBINDO-AUR-APL-2025-003165

PATIENT
  Age: 43 Year
  Sex: Female

DRUGS (2)
  1. BORTEZOMIB [Suspect]
     Active Substance: BORTEZOMIB
     Indication: Epstein-Barr virus infection
     Route: 065
  2. GANCICLOVIR [Suspect]
     Active Substance: GANCICLOVIR
     Indication: Epstein-Barr virus infection
     Route: 065

REACTIONS (5)
  - Peripheral T-cell lymphoma unspecified [Unknown]
  - Pleural effusion [Unknown]
  - Drug ineffective [Unknown]
  - Pyrexia [Unknown]
  - Streptococcal infection [Unknown]
